FAERS Safety Report 8822664 (Version 1)
Quarter: 2012Q4

REPORT INFORMATION
  Report Type: 
  Country: US (occurrence: US)
  Receive Date: 20121003
  Receipt Date: 20121003
  Transmission Date: 20130627
  Serious: No
  Sender: FDA-Public Use
  Company Number: US-PFIZER INC-2012244585

PATIENT
  Age: 45 Year
  Sex: Female
  Weight: 107 kg

DRUGS (2)
  1. LYRICA [Suspect]
     Indication: PAIN IN EXTREMITY
     Dosage: 50 mg, 3x/day
     Route: 048
     Dates: start: 20120906, end: 20120917
  2. CYANOCOBALAMIN/FOLIC ACID/PYRIDOXINE [Concomitant]
     Indication: NERVOUS SYSTEM DISORDER
     Dosage: UNK

REACTIONS (1)
  - Pruritus generalised [Recovered/Resolved]
